FAERS Safety Report 14856951 (Version 1)
Quarter: 2018Q2

REPORT INFORMATION
  Report Type: Spontaneous
  Country: US (occurrence: US)
  Receive Date: 20180507
  Receipt Date: 20180507
  Transmission Date: 20180711
  Serious: No
  Sender: FDA-Public Use
  Company Number: US-ROCHE-2077513

PATIENT
  Age: 62 Year
  Sex: Female
  Weight: 60.84 kg

DRUGS (2)
  1. ESBRIET [Suspect]
     Active Substance: PIRFENIDONE
     Indication: IDIOPATHIC PULMONARY FIBROSIS
     Dosage: 3 TABLETS 3 TIMES A DAY ;ONGOING: NO
     Route: 048
     Dates: start: 20171207
  2. ESBRIET [Suspect]
     Active Substance: PIRFENIDONE
     Dosage: 2 TABLETS 3 TIMES A DAY ;ONGOING: YES
     Route: 048

REACTIONS (6)
  - Renal disorder [Not Recovered/Not Resolved]
  - Blood pressure increased [Not Recovered/Not Resolved]
  - Headache [Not Recovered/Not Resolved]
  - Fatigue [Not Recovered/Not Resolved]
  - Liver disorder [Not Recovered/Not Resolved]
  - Eye contusion [Not Recovered/Not Resolved]
